FAERS Safety Report 20748690 (Version 1)
Quarter: 2022Q2

REPORT INFORMATION
  Report Type: Report from Study
  Country: BE (occurrence: BE)
  Receive Date: 20220426
  Receipt Date: 20220426
  Transmission Date: 20220721
  Serious: Yes (Hospitalization)
  Sender: FDA-Public Use
  Company Number: BE-Symogen - AB-202000016

PATIENT

DRUGS (6)
  1. LEUKINE [Suspect]
     Active Substance: SARGRAMOSTIM
     Indication: Respiratory failure
     Dosage: 125 MCG 2X/DAY
     Route: 055
     Dates: start: 20200428, end: 20200502
  2. LEUKINE [Suspect]
     Active Substance: SARGRAMOSTIM
     Indication: Respiratory failure
     Dosage: 125 MCG/M2 1X/DAY
     Route: 042
     Dates: start: 20200504, end: 20200508
  3. NADROPARIN CALCIUM [Concomitant]
     Active Substance: NADROPARIN CALCIUM
     Indication: Thrombosis prophylaxis
     Dosage: 0.4 ML SC
     Route: 058
     Dates: start: 20200427
  4. Amoxidar [Concomitant]
     Indication: Evidence based treatment
     Dosage: 1000 IU/ 250 MG IV
     Route: 042
     Dates: start: 20200430, end: 20200506
  5. PIPERACILLIN AND TAZOBACTAM [Concomitant]
     Active Substance: PIPERACILLIN SODIUM\TAZOBACTAM SODIUM
     Indication: Escherichia infection
     Dosage: 4 G 4X/D IV
     Route: 042
     Dates: start: 20200506, end: 20200508
  6. MEROPENEM [Concomitant]
     Active Substance: MEROPENEM
     Indication: Escherichia infection
     Route: 065
     Dates: start: 20200508

REACTIONS (2)
  - Acute respiratory failure [Recovered/Resolved]
  - Nosocomial infection [Recovered/Resolved]

NARRATIVE: CASE EVENT DATE: 20200504
